FAERS Safety Report 25712634 (Version 1)
Quarter: 2025Q3

REPORT INFORMATION
  Report Type: Spontaneous
  Country: US (occurrence: US)
  Receive Date: 20250821
  Receipt Date: 20250821
  Transmission Date: 20251020
  Serious: Yes (Hospitalization)
  Sender: PFIZER
  Company Number: US-PFIZER INC-202500166486

PATIENT
  Age: 41 Year
  Sex: Female

DRUGS (17)
  1. LO/OVRAL-28 [Suspect]
     Active Substance: ETHINYL ESTRADIOL\NORGESTREL
     Indication: Vaginal haemorrhage
     Dosage: 1 TABLET 0.3 MG-30MCG, Q24H
     Dates: start: 20250206, end: 20250206
  2. LO/OVRAL-28 [Suspect]
     Active Substance: ETHINYL ESTRADIOL\NORGESTREL
     Indication: Heavy menstrual bleeding
     Dosage: 3 TABLETS 0.3 MG-30MCG, Q24H
     Dates: start: 20250207, end: 20250207
  3. LO/OVRAL-28 [Suspect]
     Active Substance: ETHINYL ESTRADIOL\NORGESTREL
     Dosage: 2 TABLETS 0.3MG-30 MCG, Q24H
     Dates: start: 20250208, end: 20250210
  4. LO/OVRAL-28 [Suspect]
     Active Substance: ETHINYL ESTRADIOL\NORGESTREL
     Dosage: 1 TABLET 0.3 MG-30MCG, Q24H
     Dates: start: 20250211, end: 20250218
  5. LO/OVRAL-28 [Suspect]
     Active Substance: ETHINYL ESTRADIOL\NORGESTREL
     Dates: start: 20250218, end: 20250303
  6. LO/OVRAL-28 [Suspect]
     Active Substance: ETHINYL ESTRADIOL\NORGESTREL
     Dates: start: 20250304, end: 20250304
  7. LO/OVRAL-28 [Suspect]
     Active Substance: ETHINYL ESTRADIOL\NORGESTREL
     Dosage: 3 TABLETS 0.3 MG-30 MCG, Q24H
     Dates: start: 20250305, end: 20250306
  8. LO/OVRAL-28 [Suspect]
     Active Substance: ETHINYL ESTRADIOL\NORGESTREL
     Dates: start: 20250307, end: 20250307
  9. MEDROXYPROGESTERONE [Concomitant]
     Active Substance: MEDROXYPROGESTERONE
     Dates: start: 20250307
  10. MELATONIN [Concomitant]
     Active Substance: MELATONIN
     Dates: start: 20241126
  11. METRONIDAZOLE [Concomitant]
     Active Substance: METRONIDAZOLE
     Dates: start: 20250301
  12. ONDANSETRON [Concomitant]
     Active Substance: ONDANSETRON
     Dates: start: 20240814
  13. POLYETHYLENE GLYCOL 3350 [Concomitant]
     Active Substance: POLYETHYLENE GLYCOL 3350
     Dates: start: 20241122
  14. SERTRALINE [Concomitant]
     Active Substance: SERTRALINE HYDROCHLORIDE
     Dates: start: 20241128
  15. SODIUM BICARBONATE\SODIUM CHLORIDE [Concomitant]
     Active Substance: SODIUM BICARBONATE\SODIUM CHLORIDE
     Dates: start: 20250120
  16. VALACYCLOVIR HYDROCHLORIDE [Concomitant]
     Active Substance: VALACYCLOVIR HYDROCHLORIDE
     Dates: start: 20241127
  17. URSODIOL [Concomitant]
     Active Substance: URSODIOL
     Dates: start: 20250115

REACTIONS (6)
  - Abdominal pain upper [Recovered/Resolved]
  - Dyspepsia [Recovered/Resolved]
  - Jaundice [Recovered/Resolved]
  - Headache [Recovered/Resolved]
  - Blood bilirubin increased [Recovered/Resolved]
  - Off label use [Unknown]

NARRATIVE: CASE EVENT DATE: 20250206
